FAERS Safety Report 9732485 (Version 3)
Quarter: 2014Q2

REPORT INFORMATION
  Report Type: Spontaneous
  Country: US (occurrence: None)
  Receive Date: 20131203
  Receipt Date: 20140603
  Transmission Date: 20141212
  Serious: Yes (Hospitalization, Other)
  Sender: FDA-Public Use
  Company Number: VAL_02842_2013

PATIENT
  Sex: Female

DRUGS (11)
  1. LOPRESSOR [Suspect]
     Indication: BLOOD PRESSURE
     Dosage: (25 MG, DF)
     Dates: start: 201405
  2. LOPRESSOR [Suspect]
     Indication: PALPITATIONS
     Dosage: (25 MG, DF)
     Dates: start: 201405
  3. DILTIAZEM [Suspect]
     Indication: PRODUCT USED FOR UNKNOWN INDICATION
     Dosage: (DF [REGIMEN 1])
  4. XANAX [Suspect]
     Indication: PRODUCT USED FOR UNKNOWN INDICATION
     Dosage: DF
  5. BYSTOLIC [Suspect]
     Indication: PRODUCT USED FOR UNKNOWN INDICATION
     Dosage: (DF [REGIMEN 1])
  6. LEXAPRO (NOT SPECIFIED) [Suspect]
     Indication: PRODUCT USED FOR UNKNOWN INDICATION
     Dosage: DF REGIMEN 1
  7. CENTRUM / 07499601/ [Concomitant]
  8. METOPROLOL [Suspect]
     Indication: BLOOD PRESSURE
     Dosage: (DF)
  9. METOPROLOL [Suspect]
     Indication: PALPITATIONS
     Dosage: (DF)
  10. DIOVAN (NOT SPECIFIED) [Suspect]
     Indication: HYPERTENSION
     Dates: start: 2012
  11. KINEVAC [Suspect]
     Indication: PRODUCT USED FOR UNKNOWN INDICATION
     Dosage: ([DF OVER 60 MIN, REGIMEN 1])
     Route: 042

REACTIONS (44)
  - Weight decreased [None]
  - Erythema [None]
  - Pain in extremity [None]
  - Diarrhoea [None]
  - Nausea [None]
  - Gastrointestinal disorder [None]
  - Chest pain [None]
  - Sleep disorder [None]
  - Abdominal pain [None]
  - Gastritis [None]
  - Eating disorder [None]
  - Palpitations [None]
  - Asthenia [None]
  - Muscle tightness [None]
  - Dysgeusia [None]
  - Erythema [None]
  - Pain [None]
  - Supraventricular tachycardia [None]
  - Tremor [None]
  - Weight decreased [None]
  - Rash [None]
  - Lactose intolerance [None]
  - Gallbladder disorder [None]
  - Hypotension [None]
  - Blood pressure increased [None]
  - Road traffic accident [None]
  - Concussion [None]
  - Palpitations [None]
  - Rash erythematous [None]
  - Spider vein [None]
  - Somnolence [None]
  - Gait disturbance [None]
  - Feeling abnormal [None]
  - Muscle spasms [None]
  - Malaise [None]
  - Gastric disorder [None]
  - Abdominal discomfort [None]
  - Post procedural complication [None]
  - Hypotension [None]
  - Wrong technique in drug usage process [None]
  - Dizziness [None]
  - Myalgia [None]
  - Neuropathy peripheral [None]
  - Reaction to drug excipients [None]
